FAERS Safety Report 25602181 (Version 1)
Quarter: 2025Q3

REPORT INFORMATION
  Report Type: Other
  Country: US (occurrence: US)
  Receive Date: 20250724
  Receipt Date: 20250724
  Transmission Date: 20251021
  Serious: Yes (Other)
  Sender: Karo Pharma
  Company Number: US-Karo Pharma-2181119

PATIENT
  Age: 60 Year
  Sex: Male

DRUGS (1)
  1. LAMISIL [Suspect]
     Active Substance: TERBINAFINE HYDROCHLORIDE
     Indication: Product used for unknown indication

REACTIONS (3)
  - Deafness [Unknown]
  - Alopecia [Recovered/Resolved]
  - Tinnitus [Unknown]
